FAERS Safety Report 13157649 (Version 1)
Quarter: 2017Q1

REPORT INFORMATION
  Report Type: Spontaneous
  Country: US (occurrence: US)
  Receive Date: 20170127
  Receipt Date: 20170127
  Transmission Date: 20170428
  Serious: Yes (Other)
  Sender: FDA-Public Use
  Company Number: US-JNJFOC-20161221920

PATIENT
  Sex: Male
  Weight: 122.47 kg

DRUGS (11)
  1. SIMPONI ARIA [Suspect]
     Active Substance: GOLIMUMAB
     Indication: PSORIATIC ARTHROPATHY
     Route: 042
     Dates: start: 201604
  2. METOPROLOL. [Concomitant]
     Active Substance: METOPROLOL
     Indication: CARDIAC DISORDER
     Route: 048
     Dates: start: 2012
  3. GABAPENTIN. [Concomitant]
     Active Substance: GABAPENTIN
     Indication: NEURALGIA
     Route: 048
     Dates: start: 201606
  4. CLOBETASOL PROPIONATE. [Concomitant]
     Active Substance: CLOBETASOL PROPIONATE
     Indication: PSORIASIS
     Route: 061
     Dates: start: 2016
  5. OMEPRAZOLE. [Concomitant]
     Active Substance: OMEPRAZOLE
     Indication: DUODENOGASTRIC REFLUX
     Route: 048
     Dates: start: 2013
  6. KETOCONAZOLE. [Concomitant]
     Active Substance: KETOCONAZOLE
     Indication: PSORIASIS
     Route: 061
     Dates: start: 2016
  7. OXYCODONE [Concomitant]
     Active Substance: OXYCODONE
     Indication: PAIN
     Route: 048
     Dates: start: 2012, end: 201612
  8. SIMPONI ARIA [Suspect]
     Active Substance: GOLIMUMAB
     Indication: PSORIATIC ARTHROPATHY
     Route: 042
  9. LORAZEPAM. [Concomitant]
     Active Substance: LORAZEPAM
     Indication: ANXIETY
     Route: 048
     Dates: start: 2012
  10. OXYCODONE [Concomitant]
     Active Substance: OXYCODONE
     Indication: PAIN
     Route: 048
     Dates: start: 201612
  11. HYDROXYZINE [Concomitant]
     Active Substance: HYDROXYZINE HYDROCHLORIDE
     Indication: PSORIASIS
     Dosage: AS NEEDED
     Route: 048
     Dates: start: 2015

REACTIONS (7)
  - Psoriatic arthropathy [Not Recovered/Not Resolved]
  - Product use issue [Unknown]
  - Meibomian gland dysfunction [Not Recovered/Not Resolved]
  - Off label use [Unknown]
  - Drug ineffective [Not Recovered/Not Resolved]
  - Hordeolum [Not Recovered/Not Resolved]
  - Psoriasis [Not Recovered/Not Resolved]

NARRATIVE: CASE EVENT DATE: 2016
